FAERS Safety Report 4544712-8 (Version None)
Quarter: 2004Q4

REPORT INFORMATION
  Report Type: 
  Country: None (occurrence: None)
  Receive Date: 20041230
  Receipt Date: 20041214
  Transmission Date: 20050328
  Serious: Yes (Death, Other)
  Sender: FDA-Public Use
  Company Number: 2004097190

PATIENT
  Age: 80 Year
  Sex: Male

DRUGS (3)
  1. CARDURA XL [Suspect]
     Indication: BENIGN PROSTATIC HYPERPLASIA
     Dosage: 4 MG (4MG, 1 IN 1 D); ORAL
     Route: 048
     Dates: start: 20040707
  2. PHENYTOIN [Concomitant]
  3. ENALAPRIL [Concomitant]

REACTIONS (5)
  - ARTERIAL OCCLUSIVE DISEASE [None]
  - ARTERIAL RUPTURE [None]
  - MALAISE [None]
  - MYOCARDIAL INFARCTION [None]
  - SUDDEN DEATH [None]
